FAERS Safety Report 11959510 (Version 1)
Quarter: 2016Q1

REPORT INFORMATION
  Report Type: Report from Study
  Country: US (occurrence: US)
  Receive Date: 20160126
  Receipt Date: 20160126
  Transmission Date: 20160526
  Serious: Yes (Hospitalization)
  Sender: FDA-Public Use
  Company Number: US-ABBVIE-15K-163-1371671-00

PATIENT
  Age: 50 Year
  Sex: Male

DRUGS (1)
  1. HUMIRA [Suspect]
     Active Substance: ADALIMUMAB
     Indication: CROHN^S DISEASE
     Route: 065
     Dates: start: 20140411

REACTIONS (3)
  - Colostomy [Recovering/Resolving]
  - Unevaluable event [Recovering/Resolving]
  - Ileostomy [Recovering/Resolving]

NARRATIVE: CASE EVENT DATE: 201503
